FAERS Safety Report 4797294-X (Version None)
Quarter: 2005Q4

REPORT INFORMATION
  Report Type: 
  Country: None (occurrence: None)
  Receive Date: 20051013
  Receipt Date: 20051007
  Transmission Date: 20060501
  Serious: Yes (Life-Threatening, Hospitalization)
  Sender: FDA-Public Use
  Company Number: JP-GLAXOSMITHKLINE-B0396691A

PATIENT
  Age: 79 Year
  Sex: Male

DRUGS (2)
  1. SEREVENT [Suspect]
     Indication: CHRONIC OBSTRUCTIVE PULMONARY DISEASE
     Dosage: 50MCG TWICE PER DAY
     Dates: start: 20040921
  2. TIOTROPIUM [Suspect]

REACTIONS (7)
  - ACUTE RESPIRATORY FAILURE [None]
  - BACTERIAL INFECTION [None]
  - DIARRHOEA [None]
  - GASTRIC CANCER [None]
  - HYPOKALAEMIA [None]
  - PNEUMONIA [None]
  - VIRAL INFECTION [None]
